FAERS Safety Report 9538578 (Version 1)
Quarter: 2013Q2

REPORT INFORMATION
  Report Type: Spontaneous
  Country: US (occurrence: None)
  Receive Date: 20130517
  Receipt Date: 20130517
  Transmission Date: 20140414
  Serious: No
  Sender: FDA-Public Use
  Company Number: 1000041883

PATIENT
  Age: 30 Year
  Sex: Female

DRUGS (2)
  1. VIIBRYD (VILAZODONE HYDROCHLORIDE (10 MILLIGRAM, TABLETS) [Suspect]
     Indication: POSTPARTUM DEPRESSION
     Route: 048
     Dates: start: 20130115
  2. ZIAC (BISELECT) (BISELECT) [Concomitant]

REACTIONS (4)
  - Feeling jittery [None]
  - Nausea [None]
  - Diarrhoea [None]
  - Off label use [None]
